FAERS Safety Report 9210910 (Version 1)
Quarter: 2013Q2

REPORT INFORMATION
  Report Type: Spontaneous
  Country: CN (occurrence: CN)
  Receive Date: 20130404
  Receipt Date: 20130404
  Transmission Date: 20140414
  Serious: Yes (Other)
  Sender: FDA-Public Use
  Company Number: PHHY2013CN031455

PATIENT
  Age: 73 Year
  Sex: Female

DRUGS (2)
  1. CLOPIDOGREL [Suspect]
     Indication: CEREBROVASCULAR ACCIDENT
  2. ACETYLSALICYLIC ACID [Suspect]
     Dosage: 0.1 G
     Route: 048

REACTIONS (3)
  - Thrombocytopenia [Recovering/Resolving]
  - Platelet count decreased [Recovering/Resolving]
  - Gingival bleeding [Recovering/Resolving]
